FAERS Safety Report 25836895 (Version 1)
Quarter: 2025Q3

REPORT INFORMATION
  Report Type: Spontaneous
  Country: MX (occurrence: MX)
  Receive Date: 20250923
  Receipt Date: 20250923
  Transmission Date: 20251020
  Serious: Yes (Hospitalization)
  Sender: SANDOZ
  Company Number: MX-002147023-NVSC2025MX147564

PATIENT
  Age: 87 Year
  Sex: Male

DRUGS (1)
  1. EXELON [Suspect]
     Active Substance: RIVASTIGMINE TARTRATE
     Indication: Product used for unknown indication
     Dosage: 1 DOSAGE FORM, QD (1 PATCH) (EXTENDED RELEASE)
     Route: 062

REACTIONS (2)
  - Renal failure [Unknown]
  - Hallucination [Unknown]
